FAERS Safety Report 11633540 (Version 1)
Quarter: 2015Q4

REPORT INFORMATION
  Report Type: Spontaneous
  Country: US (occurrence: US)
  Receive Date: 20151015
  Receipt Date: 20151015
  Transmission Date: 20160304
  Serious: No
  Sender: FDA-Public Use
  Company Number: US-GLAXOSMITHKLINE-US2015GSK124469

PATIENT
  Sex: Female

DRUGS (2)
  1. NICODERM CQ [Suspect]
     Active Substance: NICOTINE
     Indication: SMOKING CESSATION THERAPY
     Dosage: 21 MG, SINGLE
     Route: 062
     Dates: start: 20150403, end: 20150403
  2. NICODERM CQ [Suspect]
     Active Substance: NICOTINE
     Dosage: 21 MG, SINGLE
     Dates: start: 201506, end: 201506

REACTIONS (2)
  - Burning sensation [Recovered/Resolved]
  - Application site pain [Recovered/Resolved]
